FAERS Safety Report 10543875 (Version 1)
Quarter: 2014Q4

REPORT INFORMATION
  Report Type: Spontaneous
  Country: US (occurrence: US)
  Receive Date: 20141027
  Receipt Date: 20141027
  Transmission Date: 20150529
  Serious: No
  Sender: FDA-Public Use
  Company Number: US-BAYER-2014-154501

PATIENT
  Age: 80 Year
  Sex: Female
  Weight: 65.76 kg

DRUGS (3)
  1. HYDROCHLOROTHIAZIDE. [Suspect]
     Active Substance: HYDROCHLOROTHIAZIDE
     Dosage: UNK
  2. VALIUM [Concomitant]
     Active Substance: DIAZEPAM
     Dosage: 5 MG, UNK
  3. ALEVE [Suspect]
     Active Substance: NAPROXEN SODIUM
     Indication: PAIN
     Dosage: 2 DF, BID
     Route: 048
     Dates: start: 201406

REACTIONS (5)
  - Blood pressure increased [Not Recovered/Not Resolved]
  - Peripheral swelling [Recovered/Resolved]
  - Extra dose administered [None]
  - Intentional product misuse [None]
  - Incorrect drug administration duration [None]

NARRATIVE: CASE EVENT DATE: 2014
